FAERS Safety Report 6849111-1 (Version None)
Quarter: 2010Q3

REPORT INFORMATION
  Report Type: 
  Country: None (occurrence: None)
  Receive Date: 20100716
  Receipt Date: 20080102
  Transmission Date: 20110219
  Serious: Yes (Other)
  Sender: FDA-Public Use
  Company Number: PHHY2008AU36970

PATIENT
  Sex: Male

DRUGS (2)
  1. CLOZARIL [Suspect]
     Indication: SCHIZOPHRENIA
     Dosage: 500 MG, QD, 100 MG MANE AND 400 MG NOCTE
     Dates: start: 20040715, end: 20070501
  2. CLOZARIL [Suspect]
     Dosage: UNK
     Dates: end: 20071022

REACTIONS (5)
  - CARDIAC DISORDER [None]
  - ECHOCARDIOGRAM ABNORMAL [None]
  - ELECTROCARDIOGRAM QT PROLONGED [None]
  - LIBIDO DECREASED [None]
  - SEXUAL DYSFUNCTION [None]
